FAERS Safety Report 24129280 (Version 2)
Quarter: 2024Q3

REPORT INFORMATION
  Report Type: Spontaneous
  Country: TR (occurrence: TR)
  Receive Date: 20240723
  Receipt Date: 20240726
  Transmission Date: 20241017
  Serious: Yes (Other)
  Sender: NOVARTIS
  Company Number: TR-002147023-NVSC2024TR150021

PATIENT
  Age: 2 Year
  Sex: Male

DRUGS (1)
  1. CANAKINUMAB [Suspect]
     Active Substance: CANAKINUMAB
     Indication: Still^s disease
     Dosage: 4?8 MG/KG/MONTH
     Route: 065

REACTIONS (3)
  - Still^s disease [Unknown]
  - Disease progression [Unknown]
  - Drug ineffective [Unknown]
